FAERS Safety Report 22143724 (Version 1)
Quarter: 2023Q1

REPORT INFORMATION
  Report Type: Spontaneous
  Country: US (occurrence: US)
  Receive Date: 20230327
  Receipt Date: 20230327
  Transmission Date: 20230417
  Serious: Yes (Other)
  Sender: FDA-Public Use
  Company Number: US-BIOMARINAP-US-2023-149302

PATIENT

DRUGS (1)
  1. PALYNZIQ [Suspect]
     Active Substance: PEGVALIASE-PQPZ
     Indication: Phenylketonuria
     Dosage: 2.5 MILLIGRAM, QW
     Route: 058
     Dates: start: 202211

REACTIONS (7)
  - Cellulitis [Unknown]
  - Temperature regulation disorder [Unknown]
  - Flushing [Unknown]
  - Rash [Unknown]
  - Muscle tightness [Unknown]
  - Myalgia [Unknown]
  - Arthralgia [Unknown]
